FAERS Safety Report 8137975-3 (Version None)
Quarter: 2012Q1

REPORT INFORMATION
  Report Type: 
  Country: None (occurrence: None)
  Receive Date: 20120215
  Receipt Date: 20120209
  Transmission Date: 20120608
  Serious: Yes (Congenital Anomaly)
  Sender: FDA-Public Use
  Company Number: DE-PFIZER INC-2012035253

PATIENT

DRUGS (2)
  1. FOLIC ACID [Concomitant]
     Indication: PROPHYLAXIS OF NEURAL TUBE DEFECT
     Dosage: 5 MG, DAILY
     Route: 064
     Dates: start: 20110620
  2. VENLAFAXINE HCL [Suspect]
     Indication: DEPRESSION
     Dosage: 150 MG, 1X/DAY
     Route: 064
     Dates: start: 20110501

REACTIONS (4)
  - TRISOMY 21 [None]
  - CLEFT LIP AND PALATE [None]
  - MATERNAL EXPOSURE TIMING UNSPECIFIED [None]
  - ATRIOVENTRICULAR SEPTAL DEFECT [None]
